FAERS Safety Report 15553269 (Version 2)
Quarter: 2018Q4

REPORT INFORMATION
  Report Type: Spontaneous
  Country: JP (occurrence: JP)
  Receive Date: 20181026
  Receipt Date: 20181115
  Transmission Date: 20190205
  Serious: Yes (Life-Threatening, Hospitalization, Other)
  Sender: FDA-Public Use
  Company Number: JP-ABBVIE-18S-087-2525935-00

PATIENT
  Age: 7 Month
  Sex: Male
  Weight: 8.1 kg

DRUGS (8)
  1. LACTOMIN [Concomitant]
     Active Substance: LACTOBACILLUS ACIDOPHILUS
     Indication: GASTROINTESTINAL DISORDER
     Dosage: AS NEEDED
     Route: 048
  2. SYNAGIS [Suspect]
     Active Substance: PALIVIZUMAB
     Route: 030
     Dates: start: 20180714
  3. SYNAGIS [Suspect]
     Active Substance: PALIVIZUMAB
     Route: 030
     Dates: start: 20180810
  4. SYNAGIS [Suspect]
     Active Substance: PALIVIZUMAB
     Route: 030
     Dates: start: 20181012
  5. SYNAGIS [Suspect]
     Active Substance: PALIVIZUMAB
     Route: 030
     Dates: start: 20180914
  6. INDELAL [Suspect]
     Active Substance: PROPRANOLOL HYDROCHLORIDE
     Route: 048
     Dates: start: 20181015
  7. SYNAGIS [Suspect]
     Active Substance: PALIVIZUMAB
     Indication: EBSTEIN^S ANOMALY
     Route: 030
     Dates: start: 20170309
  8. INDELAL [Suspect]
     Active Substance: PROPRANOLOL HYDROCHLORIDE
     Indication: SUPRAVENTRICULAR TACHYCARDIA
     Dosage: DAILY DOSE: 7-8 MG/KG
     Route: 048
     Dates: start: 201809

REACTIONS (7)
  - Crying [Unknown]
  - Supraventricular tachycardia [Recovered/Resolved]
  - Vomiting [Unknown]
  - Cyanosis [Unknown]
  - Diarrhoea [Recovered/Resolved]
  - Irritability [Recovering/Resolving]
  - Eczema [Recovered/Resolved]

NARRATIVE: CASE EVENT DATE: 201809
